FAERS Safety Report 10625983 (Version 3)
Quarter: 2015Q1

REPORT INFORMATION
  Report Type: Spontaneous
  Country: DE (occurrence: DE)
  Receive Date: 20141204
  Receipt Date: 20150127
  Transmission Date: 20150720
  Serious: Yes (Other)
  Sender: FDA-Public Use
  Company Number: DE-JNJFOC-20141119039

PATIENT
  Age: 70 Year
  Sex: Female

DRUGS (2)
  1. TOPAMAX [Suspect]
     Active Substance: TOPIRAMATE
     Indication: BENIGN INTRACRANIAL HYPERTENSION
     Route: 048
     Dates: start: 20140904
  2. TOPAMAX [Suspect]
     Active Substance: TOPIRAMATE
     Indication: BENIGN INTRACRANIAL HYPERTENSION
     Route: 048
     Dates: end: 20141128

REACTIONS (1)
  - Neovascular age-related macular degeneration [Not Recovered/Not Resolved]

NARRATIVE: CASE EVENT DATE: 201410
